FAERS Safety Report 21651811 (Version 1)
Quarter: 2022Q4

REPORT INFORMATION
  Report Type: Spontaneous
  Country: US (occurrence: US)
  Receive Date: 20221128
  Receipt Date: 20221128
  Transmission Date: 20230113
  Serious: No
  Sender: FDA-Public Use
  Company Number: US-CHIESI-2022CHF00182

PATIENT
  Age: 31 Year
  Sex: Male

DRUGS (1)
  1. REVCOVI [Suspect]
     Active Substance: ELAPEGADEMASE-LVLR
     Indication: Combined immunodeficiency
     Dosage: 11.5 2X/WEEK
     Dates: start: 20210714

REACTIONS (2)
  - COVID-19 [Recovered/Resolved]
  - Weight decreased [Unknown]

NARRATIVE: CASE EVENT DATE: 20220101
